FAERS Safety Report 10139074 (Version 1)
Quarter: 2014Q2

REPORT INFORMATION
  Report Type: Spontaneous
  Country: US (occurrence: US)
  Receive Date: 20140429
  Receipt Date: 20140429
  Transmission Date: 20141212
  Serious: Yes (Other)
  Sender: FDA-Public Use
  Company Number: US-INCYTE CORPORATION-2014IN001103

PATIENT
  Age: 53 Year
  Sex: Female

DRUGS (4)
  1. JAKAFI [Suspect]
     Indication: MYELOFIBROSIS
     Dosage: 25 MG, BID
     Route: 048
  2. VICODIN [Concomitant]
  3. NORCO [Concomitant]
  4. XANAX [Concomitant]

REACTIONS (2)
  - Splenectomy [Recovered/Resolved]
  - Drug ineffective [Unknown]
